FAERS Safety Report 8102857-X (Version None)
Quarter: 2012Q1

REPORT INFORMATION
  Report Type: 
  Country: None (occurrence: None)
  Receive Date: 20120201
  Receipt Date: 20120124
  Transmission Date: 20120608
  Serious: Yes (Hospitalization)
  Sender: FDA-Public Use
  Company Number: FR-SANOFI-AVENTIS-2012SA004903

PATIENT
  Age: 65 Year
  Sex: Male

DRUGS (3)
  1. PREDNISONE TAB [Suspect]
     Route: 048
     Dates: start: 20060101
  2. ARAVA [Suspect]
     Indication: RHEUMATOID ARTHRITIS
     Route: 048
     Dates: start: 20020101, end: 20120101
  3. ETANERCEPT [Suspect]
     Indication: RHEUMATOID ARTHRITIS
     Route: 058
     Dates: start: 20060101, end: 20120101

REACTIONS (2)
  - SPONDYLITIS [None]
  - PSOAS ABSCESS [None]
